FAERS Safety Report 16141473 (Version 2)
Quarter: 2019Q2

REPORT INFORMATION
  Report Type: Spontaneous
  Country: US (occurrence: US)
  Receive Date: 20190401
  Receipt Date: 20190403
  Transmission Date: 20190711
  Serious: Yes (Other)
  Sender: FDA-Public Use
  Company Number: US-PFIZER INC-2019136025

PATIENT
  Age: 18 Year
  Sex: Male

DRUGS (5)
  1. VINCRISTINE SULFATE. [Suspect]
     Active Substance: VINCRISTINE SULFATE
     Indication: TESTICULAR MALIGNANT TERATOMA
     Dosage: UNK, CYCLIC (COMPRESSED TWO-WEEK CYCLES)
  2. IFOSFAMIDE. [Suspect]
     Active Substance: IFOSFAMIDE
     Indication: TESTICULAR MALIGNANT TERATOMA
     Dosage: UNK, CYCLIC (COMPRESSED TWO-WEEK CYCLES)
  3. DOXORUBICIN HCL [Suspect]
     Active Substance: DOXORUBICIN HYDROCHLORIDE
     Indication: TESTICULAR MALIGNANT TERATOMA
     Dosage: UNK, CYCLIC (COMPRESSED TWO-WEEK CYCLES)
  4. CYCLOPHOSPHAMIDE. [Suspect]
     Active Substance: CYCLOPHOSPHAMIDE
     Indication: TESTICULAR MALIGNANT TERATOMA
     Dosage: UNK, CYCLIC (COMPRESSED TWO-WEEK CYCLES)
  5. ETOPOSIDE. [Suspect]
     Active Substance: ETOPOSIDE
     Indication: TESTICULAR MALIGNANT TERATOMA
     Dosage: UNK, CYCLIC (COMPRESSED TWO-WEEK CYCLES)

REACTIONS (1)
  - Bone marrow failure [Unknown]
